FAERS Safety Report 8111059-2 (Version None)
Quarter: 2012Q1

REPORT INFORMATION
  Report Type: 
  Country: None (occurrence: None)
  Receive Date: 20120203
  Receipt Date: 20110322
  Transmission Date: 20120608
  Serious: No
  Sender: FDA-Public Use
  Company Number: US-GLAXOSMITHKLINE-A0919421A

PATIENT
  Sex: Female

DRUGS (2)
  1. LAMOTRIGINE [Suspect]
     Indication: BIPOLAR DISORDER
     Dosage: 50MG PER DAY
     Route: 048
     Dates: start: 20110317, end: 20110320
  2. TYLENOL PM [Concomitant]

REACTIONS (4)
  - DIZZINESS [None]
  - EYE PAIN [None]
  - DRY EYE [None]
  - MIOSIS [None]
